FAERS Safety Report 5941975-9 (Version None)
Quarter: 2008Q4

REPORT INFORMATION
  Report Type: 
  Country: None (occurrence: None)
  Receive Date: 20081105
  Receipt Date: 20081027
  Transmission Date: 20090506
  Serious: Yes (Hospitalization, Other)
  Sender: FDA-Public Use
  Company Number: US-MERCK-0712USA02220

PATIENT
  Age: 82 Year
  Sex: Female

DRUGS (8)
  1. FOSAMAX [Suspect]
     Indication: OSTEOPOROSIS
     Route: 048
     Dates: start: 20010417
  2. FOSAMAX [Suspect]
     Route: 048
     Dates: start: 20000101, end: 20010101
  3. FOSAMAX [Suspect]
     Indication: SCOLIOSIS
     Route: 048
     Dates: start: 20010417
  4. FOSAMAX [Suspect]
     Route: 048
     Dates: start: 20000101, end: 20010101
  5. AMITRIPTYLINE HCL [Concomitant]
     Route: 065
     Dates: start: 19950101, end: 20050101
  6. FOSAMAX PLUS D [Suspect]
     Route: 065
  7. SYNTHROID [Concomitant]
     Route: 065
     Dates: start: 20000101
  8. CARISOPRODOL [Concomitant]
     Route: 065
     Dates: start: 20010101, end: 20060101

REACTIONS (27)
  - ABNORMAL LOSS OF WEIGHT [None]
  - ABSCESS JAW [None]
  - ACTINIC KERATOSIS [None]
  - ADVERSE DRUG REACTION [None]
  - ANAEMIA [None]
  - ATRIAL FIBRILLATION [None]
  - CAROTID ARTERY DISEASE [None]
  - DECREASED APPETITE [None]
  - DIARRHOEA [None]
  - EAR ABRASION [None]
  - FALL [None]
  - FATIGUE [None]
  - HEADACHE [None]
  - HYPOTHYROIDISM [None]
  - IMMUNOSUPPRESSION [None]
  - INFECTION [None]
  - INSOMNIA [None]
  - JOINT SWELLING [None]
  - LYMPHADENITIS [None]
  - LYMPHANGITIS [None]
  - MALAISE [None]
  - OSTEOMYELITIS [None]
  - OSTEONECROSIS [None]
  - SPINAL COMPRESSION FRACTURE [None]
  - SYNCOPE [None]
  - THROAT IRRITATION [None]
  - ULCER [None]
